FAERS Safety Report 17608983 (Version 4)
Quarter: 2024Q2

REPORT INFORMATION
  Report Type: Spontaneous
  Country: US (occurrence: US)
  Receive Date: 20200401
  Receipt Date: 20240607
  Transmission Date: 20240716
  Serious: No
  Sender: FDA-Public Use
  Company Number: US-GSKCCFUS-CASE-00638176_AE-37517

PATIENT
  Sex: Female

DRUGS (2)
  1. NUCALA [Suspect]
     Active Substance: MEPOLIZUMAB
     Indication: Asthma
     Dosage: UNK
     Route: 058
  2. NUCALA [Suspect]
     Active Substance: MEPOLIZUMAB
     Indication: Product used for unknown indication
     Dosage: UNK

REACTIONS (4)
  - Asthma [Unknown]
  - Dyspnoea [Unknown]
  - Product dose omission issue [Unknown]
  - Product complaint [Unknown]
